FAERS Safety Report 6644289-7 (Version None)
Quarter: 2010Q1

REPORT INFORMATION
  Report Type: 
  Country: None (occurrence: None)
  Receive Date: 20100304
  Receipt Date: 20080915
  Transmission Date: 20100710
  Serious: Yes (Other)
  Sender: FDA-Public Use
  Company Number: US-001859

PATIENT
  Age: 61 Year
  Sex: Female
  Weight: 126 kg

DRUGS (2)
  1. ISOVUE-300 [Suspect]
     Indication: CATHETERISATION CARDIAC
     Dosage: 50MG QD INTRA-ARTERIAL
     Route: 013
     Dates: start: 20080913, end: 20080913
  2. ISOVUE-300 [Suspect]
     Indication: CHEST PAIN
     Dosage: 50MG QD INTRA-ARTERIAL
     Route: 013
     Dates: start: 20080913, end: 20080913

REACTIONS (1)
  - ARTERIOSPASM CORONARY [None]
